FAERS Safety Report 7112753-2 (Version None)
Quarter: 2010Q4

REPORT INFORMATION
  Report Type: 
  Country: None (occurrence: None)
  Receive Date: 20101119
  Receipt Date: 20101110
  Transmission Date: 20110411
  Serious: Yes (Other)
  Sender: FDA-Public Use
  Company Number: US-BRISTOL-MYERS SQUIBB COMPANY-15382344

PATIENT
  Age: 52 Year
  Sex: Female

DRUGS (7)
  1. ONGLYZA [Suspect]
  2. NORVASC [Concomitant]
  3. HYDROCHLOROTHIAZIDE [Concomitant]
     Dosage: 1 DF=10 25 UNIT NOS
  4. METFORMIN HCL [Concomitant]
  5. SPIRONOLACTONE [Concomitant]
     Dosage: 1 DF=25 UNIT NOS
  6. ZEGERID [Concomitant]
  7. DETROL LA [Concomitant]

REACTIONS (1)
  - ANGIOEDEMA [None]
